FAERS Safety Report 14861436 (Version 2)
Quarter: 2018Q2

REPORT INFORMATION
  Report Type: Spontaneous
  Country: AT (occurrence: AT)
  Receive Date: 20180508
  Receipt Date: 20180514
  Transmission Date: 20180711
  Serious: Yes (Other)
  Sender: FDA-Public Use
  Company Number: AT-PFIZER INC-2018182314

PATIENT
  Age: 24 Year
  Sex: Female

DRUGS (8)
  1. PAMIDRONATE DISODIUM. [Suspect]
     Active Substance: PAMIDRONATE DISODIUM
     Indication: OSTEOPOROSIS
     Dosage: 1 MG/KG, DAILY (CYCLES OF 1MG/KG DAILY OVER 3 CONSECUTIVE DAYS AT A MEAN CYCLE INTERVAL OF 3.8MONTH)
     Route: 042
  2. VITAMIN D [Suspect]
     Active Substance: CHOLECALCIFEROL
     Indication: SUPPLEMENTATION THERAPY
  3. CALCIUM [Suspect]
     Active Substance: CALCIUM
     Indication: MULTIPLE FRACTURES
  4. PAMIDRONATE DISODIUM. [Suspect]
     Active Substance: PAMIDRONATE DISODIUM
     Indication: MULTIPLE FRACTURES
  5. CALCIUM [Suspect]
     Active Substance: CALCIUM
     Indication: SUPPLEMENTATION THERAPY
     Dosage: UNK
  6. VITAMIN D [Suspect]
     Active Substance: CHOLECALCIFEROL
     Indication: OSTEOPOROSIS
     Dosage: UNK
  7. VITAMIN D [Suspect]
     Active Substance: CHOLECALCIFEROL
     Indication: MULTIPLE FRACTURES
  8. CALCIUM [Suspect]
     Active Substance: CALCIUM
     Indication: OSTEOPOROSIS

REACTIONS (1)
  - Joint ankylosis [Unknown]
